FAERS Safety Report 25088027 (Version 2)
Quarter: 2025Q3

REPORT INFORMATION
  Report Type: Spontaneous
  Country: US (occurrence: US)
  Receive Date: 20250318
  Receipt Date: 20250720
  Transmission Date: 20251020
  Serious: No
  Sender: LUPIN
  Company Number: US-LUPIN PHARMACEUTICALS INC.-2025-02126

PATIENT
  Age: 69 Year
  Weight: 46.712 kg

DRUGS (1)
  1. ALBUTEROL SULFATE [Suspect]
     Active Substance: ALBUTEROL SULFATE
     Indication: Asthma
     Dosage: UNK, BID, 2 PUFFS 2 TIMES A DAY

REACTIONS (3)
  - Drug dose omission by device [Unknown]
  - Wrong technique in product usage process [Unknown]
  - No adverse event [Unknown]
